FAERS Safety Report 6600321-8 (Version None)
Quarter: 2010Q1

REPORT INFORMATION
  Report Type: 
  Country: None (occurrence: None)
  Receive Date: 20100217
  Receipt Date: 20100129
  Transmission Date: 20100710
  Serious: Yes (Hospitalization, Disabling)
  Sender: FDA-Public Use
  Company Number: DSJ-2009-13750

PATIENT
  Age: 72 Year
  Sex: Male

DRUGS (2)
  1. OLMESARTAN MEDOXOMIL [Suspect]
     Indication: HYPERTENSION
     Dosage: 5 MG (5 MG, 1 IN 1 D), PER ORAL
     Route: 048
     Dates: start: 20090622, end: 20091019
  2. ADALAT CC [Suspect]
     Indication: HYPERTENSION
     Dosage: 10 MG (10 MG , 1 IN 1 D), PER ORAL
     Route: 048
     Dates: start: 20090622, end: 20091019

REACTIONS (1)
  - DRUG ERUPTION [None]
